FAERS Safety Report 5256718-4 (Version None)
Quarter: 2007Q1

REPORT INFORMATION
  Report Type: 
  Country: None (occurrence: None)
  Receive Date: 20070306
  Receipt Date: 20070219
  Transmission Date: 20070707
  Serious: Yes (Other)
  Sender: FDA-Public Use
  Company Number: US-ELI_LILLY_AND_COMPANY-US200611002099

PATIENT
  Sex: Female

DRUGS (3)
  1. EVISTA [Suspect]
     Indication: OSTEOPOROSIS
     Dosage: 60 MG, UNK
     Route: 048
     Dates: start: 20040101
  2. THYROID TAB [Concomitant]
     Indication: THYROID DISORDER
     Dosage: UNK, UNKNOWN
     Route: 065
  3. FOSAMAX ONCE WEEKLY [Concomitant]
     Indication: OSTEOPOROSIS
     Dosage: UNK, WEEKLY (1/W)
     Route: 048
     Dates: start: 20010101

REACTIONS (5)
  - FALL [None]
  - LOWER LIMB FRACTURE [None]
  - RESORPTION BONE INCREASED [None]
  - SKIN LACERATION [None]
  - SPINAL COMPRESSION FRACTURE [None]
